FAERS Safety Report 6687167-X (Version None)
Quarter: 2010Q2

REPORT INFORMATION
  Report Type: 
  Country: None (occurrence: None)
  Receive Date: 20100416
  Receipt Date: 20100416
  Transmission Date: 20101027
  Serious: Yes (Other)
  Sender: FDA-Public Use
  Company Number: None

PATIENT
  Age: 26 Year
  Sex: Male
  Weight: 67.586 kg

DRUGS (8)
  1. TOBRAMYCIN [Suspect]
     Indication: PATHOGEN RESISTANCE
     Dosage: 240 MG I.V. DAILY ONE DOSE 1700
     Route: 042
     Dates: start: 20100413
  2. TOBRAMYCIN [Suspect]
     Indication: URINARY TRACT INFECTION PSEUDOMONAL
     Dosage: 240 MG I.V. DAILY ONE DOSE 1700
     Route: 042
     Dates: start: 20100413
  3. CARDURA [Concomitant]
  4. PHENERGAN [Concomitant]
  5. CELEXA [Concomitant]
  6. PRIMAXIN [Concomitant]
  7. OXYCODONE HCL [Concomitant]
  8. . [Concomitant]

REACTIONS (5)
  - ABDOMINAL PAIN [None]
  - ERYTHEMA [None]
  - INFUSION RELATED REACTION [None]
  - NAUSEA [None]
  - PRURITUS GENERALISED [None]
